FAERS Safety Report 17241276 (Version 2)
Quarter: 2020Q2

REPORT INFORMATION
  Report Type: Spontaneous
  Country: FR (occurrence: FR)
  Receive Date: 20200107
  Receipt Date: 20200616
  Transmission Date: 20200713
  Serious: Yes (Life-Threatening, Hospitalization)
  Sender: FDA-Public Use
  Company Number: FR-ACCORD-168724

PATIENT
  Age: 71 Year
  Sex: Female
  Weight: 139 kg

DRUGS (7)
  1. CARDENSIEL [Concomitant]
     Active Substance: BISOPROLOL FUMARATE
     Dosage: STRENGTH: 7.5 MG, SCORED FILM-COATED TABLET
     Route: 048
  2. METHYLPREDNISOLONE MERCK [Concomitant]
     Active Substance: METHYLPREDNISOLONE
     Route: 042
     Dates: start: 20191125, end: 20191125
  3. ONDANSETRON ACCORD [Concomitant]
     Active Substance: ONDANSETRON
     Dosage: STRENGTH: 2 MG / ML
     Route: 042
     Dates: start: 20191125, end: 20191125
  4. FLUOROURACIL ACCORD [Suspect]
     Active Substance: FLUOROURACIL
     Indication: ADENOCARCINOMA OF COLON
     Dosage: STRENGTH: 50 MG / ML
     Route: 042
     Dates: start: 20191125, end: 20191126
  5. XARELTO [Concomitant]
     Active Substance: RIVAROXABAN
     Route: 048
  6. LEVOFOLINATE SODIUM MEDAC [Concomitant]
     Route: 042
     Dates: start: 20191125, end: 20191125
  7. OXALIPLATIN ACCORD [Concomitant]
     Active Substance: OXALIPLATIN
     Dosage: STRENGTH: 5 MG / ML
     Route: 042
     Dates: start: 20191125, end: 20191125

REACTIONS (3)
  - Bone marrow failure [Recovered/Resolved]
  - Mucosal inflammation [Recovered/Resolved]
  - Contraindicated product administered [Unknown]

NARRATIVE: CASE EVENT DATE: 20191125
